FAERS Safety Report 19153988 (Version 1)
Quarter: 2021Q2

REPORT INFORMATION
  Report Type: Spontaneous
  Country: CA (occurrence: CA)
  Receive Date: 20210419
  Receipt Date: 20210419
  Transmission Date: 20210717
  Serious: Yes (Other)
  Sender: FDA-Public Use
  Company Number: CA-OTSUKA-2021_012621

PATIENT
  Age: 53 Year
  Sex: Female
  Weight: 52.15 kg

DRUGS (2)
  1. BUPROPION. [Suspect]
     Active Substance: BUPROPION
     Indication: DEPRESSION
     Dosage: 200 MG, QD
     Route: 048
  2. ABILIFY MAINTENA [Suspect]
     Active Substance: ARIPIPRAZOLE
     Indication: DEPRESSION
     Dosage: UNK UNK, QM
     Route: 051

REACTIONS (6)
  - Drug interaction [Unknown]
  - Trichorrhexis [Unknown]
  - Depressed mood [Unknown]
  - Suicidal behaviour [Unknown]
  - Product use in unapproved indication [Unknown]
  - Hair texture abnormal [Unknown]
